FAERS Safety Report 9705457 (Version 1)
Quarter: 2013Q4

REPORT INFORMATION
  Report Type: Report from Study
  Country: DE (occurrence: DE)
  Receive Date: 20131122
  Receipt Date: 20131122
  Transmission Date: 20140711
  Serious: Yes (Other)
  Sender: FDA-Public Use
  Company Number: DE-B.I. PHARMACEUTICALS,INC./RIDGEFIELD-2013-BI-38110DE

PATIENT
  Age: 17 Year
  Sex: Female

DRUGS (7)
  1. MICARDIS [Suspect]
     Dosage: 7 ANZ
     Route: 048
     Dates: start: 20131117
  2. PANTOPRAZOL [Suspect]
     Route: 048
     Dates: start: 20131117
  3. METFORMIN [Suspect]
     Dosage: 75 ANZ
     Route: 048
     Dates: start: 20131117
  4. CITALOPRAM [Suspect]
     Dosage: 40 ANZ
     Route: 048
     Dates: start: 20131117
  5. TORASEMID [Suspect]
     Dosage: 40 ANZ
     Route: 048
     Dates: start: 20131117
  6. VITAMIN B 12 [Suspect]
     Route: 048
     Dates: start: 20131117
  7. L THYROXIN [Suspect]
     Dosage: 25 ANZ
     Route: 048
     Dates: start: 20131117

REACTIONS (5)
  - Suicide attempt [Unknown]
  - Vomiting [Unknown]
  - Diarrhoea [Unknown]
  - Tachycardia [Unknown]
  - Intentional overdose [Unknown]
